FAERS Safety Report 7413628-1 (Version None)
Quarter: 2011Q2

REPORT INFORMATION
  Report Type: 
  Country: None (occurrence: None)
  Receive Date: 20110413
  Receipt Date: 20110406
  Transmission Date: 20111010
  Serious: Yes (Other)
  Sender: FDA-Public Use
  Company Number: PHHY2011FR29421

PATIENT
  Sex: Male

DRUGS (2)
  1. NEORAL [Suspect]
     Indication: BONE MARROW FAILURE
     Dosage: 120 MG, UNK
     Dates: start: 20110321, end: 20110403
  2. AMLODIPINE BESYLATE [Concomitant]
     Dosage: UNK

REACTIONS (2)
  - GINGIVAL PAIN [None]
  - PELVIC PAIN [None]
